FAERS Safety Report 6918096-1 (Version None)
Quarter: 2010Q3

REPORT INFORMATION
  Report Type: 
  Country: None (occurrence: None)
  Receive Date: 20100806
  Receipt Date: 20100721
  Transmission Date: 20110219
  Serious: Yes (Hospitalization)
  Sender: FDA-Public Use
  Company Number: 011945

PATIENT
  Sex: Male

DRUGS (9)
  1. ROTIGOTINE (ROTIGOTINE) [Suspect]
     Indication: PARKINSON'S DISEASE
     Dosage: (4.5 MG TRANSDERMAL) ; (36 MG TRANSDERMAL)
     Route: 062
     Dates: start: 20100323, end: 20100517
  2. ROTIGOTINE (ROTIGOTINE) [Suspect]
     Indication: PARKINSON'S DISEASE
     Dosage: (4.5 MG TRANSDERMAL) ; (36 MG TRANSDERMAL)
     Route: 062
     Dates: start: 20100126
  3. BENSERAZIDE HYDROCHLORIDE W/LEVODOPA [Concomitant]
  4. ENTACAPONE [Concomitant]
  5. DROXIDOPA [Concomitant]
  6. SELEGILINE HYDROCHORIDE [Concomitant]
  7. NAFTOPIDIL [Concomitant]
  8. HYDROCORTISONE BUTYRATE PROPIONATE [Concomitant]
  9. DIPHENHYDRAMINE [Concomitant]

REACTIONS (6)
  - ACTIVITIES OF DAILY LIVING IMPAIRED [None]
  - BLOOD OSMOLARITY DECREASED [None]
  - CEREBRAL ATROPHY [None]
  - INAPPROPRIATE ANTIDIURETIC HORMONE SECRETION [None]
  - MUSCLE RIGIDITY [None]
  - OBSTRUCTIVE AIRWAYS DISORDER [None]
